FAERS Safety Report 4482335-X (Version None)
Quarter: 2004Q4

REPORT INFORMATION
  Report Type: 
  Country: None (occurrence: None)
  Receive Date: 20041022
  Receipt Date: 20041013
  Transmission Date: 20050328
  Serious: Yes (Other)
  Sender: FDA-Public Use
  Company Number: SE-ROCHE-383287

PATIENT
  Age: 65 Year
  Sex: Female

DRUGS (3)
  1. XENICAL [Suspect]
     Indication: DRUG USE FOR UNKNOWN INDICATION
     Route: 065
     Dates: start: 20030615, end: 20041009
  2. XENICAL [Suspect]
     Route: 065
     Dates: start: 20041012, end: 20041012
  3. AERIUS [Concomitant]
     Dates: start: 20040615, end: 20041009

REACTIONS (5)
  - ALLERGY TO CHEMICALS [None]
  - BURNING SENSATION [None]
  - PRURITUS [None]
  - RASH [None]
  - RASH ERYTHEMATOUS [None]
